FAERS Safety Report 18316491 (Version 2)
Quarter: 2020Q4

REPORT INFORMATION
  Report Type: Spontaneous
  Country: VN (occurrence: VN)
  Receive Date: 20200927
  Receipt Date: 20201006
  Transmission Date: 20210113
  Serious: Yes (Death)
  Sender: FDA-Public Use
  Company Number: VN-ROCHE-2684071

PATIENT
  Age: 67 Year
  Sex: Male

DRUGS (4)
  1. PACLITAXEL. [Concomitant]
     Active Substance: PACLITAXEL
  2. TECENTRIQ [Suspect]
     Active Substance: ATEZOLIZUMAB
     Indication: NON-SMALL CELL LUNG CANCER
     Route: 042
     Dates: start: 2019
  3. NAVELBINE [Concomitant]
     Active Substance: VINORELBINE TARTRATE
  4. TECENTRIQ [Suspect]
     Active Substance: ATEZOLIZUMAB
     Indication: ADENOCARCINOMA METASTATIC

REACTIONS (3)
  - Asthenia [Fatal]
  - Respiratory failure [Fatal]
  - Coma [Fatal]
